FAERS Safety Report 16683416 (Version 1)
Quarter: 2019Q3

REPORT INFORMATION
  Report Type: Spontaneous
  Country: US (occurrence: US)
  Receive Date: 20190807
  Receipt Date: 20190807
  Transmission Date: 20191007
  Serious: No
  Sender: FDA-Public Use
  Company Number: None

PATIENT
  Age: 30 Year
  Sex: Male
  Weight: 88.45 kg

DRUGS (1)
  1. LUMASON [Suspect]
     Active Substance: SULFUR HEXAFLUORIDE
     Route: 042

REACTIONS (3)
  - Respiratory disorder [None]
  - Blood pressure decreased [None]
  - Ocular hyperaemia [None]

NARRATIVE: CASE EVENT DATE: 20190806
